FAERS Safety Report 4325653-8 (Version None)
Quarter: 2004Q1

REPORT INFORMATION
  Report Type: 
  Country: None (occurrence: None)
  Receive Date: 20040324
  Receipt Date: 20040311
  Transmission Date: 20041129
  Serious: Yes (Hospitalization)
  Sender: FDA-Public Use
  Company Number: 04P-062-0250670-00

PATIENT
  Age: 46 Year
  Sex: Male
  Weight: 95 kg

DRUGS (1)
  1. TARKA [Suspect]
     Indication: SUICIDE ATTEMPT
     Dosage: 14 CAPSULE, ONCE, PER ORAL
     Route: 048
     Dates: start: 20040215, end: 20040215

REACTIONS (2)
  - OVERDOSE [None]
  - SUICIDE ATTEMPT [None]
